FAERS Safety Report 5704523-4 (Version None)
Quarter: 2008Q2

REPORT INFORMATION
  Report Type: 
  Country: None (occurrence: None)
  Receive Date: 20080411
  Receipt Date: 20080411
  Transmission Date: 20081010
  Serious: Yes (Life-Threatening, Hospitalization)
  Sender: FDA-Public Use
  Company Number: None

PATIENT
  Sex: Female
  Weight: 61.6892 kg

DRUGS (1)
  1. NUVARING [Suspect]
     Indication: AMENORRHOEA
     Dosage: 0.12-0.015 MG/24 HR  1RINGX3WKS MONTHLY VAG
     Route: 067
     Dates: start: 20070215, end: 20080319

REACTIONS (1)
  - PULMONARY EMBOLISM [None]
